FAERS Safety Report 8057472-3 (Version None)
Quarter: 2012Q1

REPORT INFORMATION
  Report Type: 
  Country: None (occurrence: None)
  Receive Date: 20120119
  Receipt Date: 20120117
  Transmission Date: 20120608
  Serious: Yes (Other)
  Sender: FDA-Public Use
  Company Number: US-ABBOTT-11P-163-0878406-00

PATIENT
  Age: 28 Year
  Sex: Male

DRUGS (14)
  1. NYQUIL [Concomitant]
     Indication: INFLUENZA
  2. HUMIRA [Suspect]
     Indication: CROHN'S DISEASE
     Dates: start: 20111010
  3. PREDNISONE TAB [Concomitant]
     Indication: PRODUCT USED FOR UNKNOWN INDICATION
  4. METHADONE HCL [Concomitant]
     Indication: ABDOMINAL PAIN UPPER
  5. PREDNISONE TAB [Concomitant]
     Dosage: HASNT TAKEN FOR 2 DAYS
  6. OXYCODONE HCL [Concomitant]
     Indication: PRODUCT USED FOR UNKNOWN INDICATION
     Dosage: 8 TIMES DAILY AS REQUIRED
  7. KEPPRA [Concomitant]
     Indication: CONVULSION
  8. ANTIOXIDANT [Concomitant]
  9. PROMETHAZINE [Concomitant]
     Indication: NAUSEA
  10. AZATHIOPRINE [Concomitant]
     Indication: PRODUCT USED FOR UNKNOWN INDICATION
  11. XANAX [Concomitant]
     Indication: ANXIETY
  12. ANTIOXIDANT [Concomitant]
     Indication: PRODUCT USED FOR UNKNOWN INDICATION
  13. HUMIRA [Suspect]
     Dosage: DAY 15
  14. HUMIRA [Suspect]
     Dosage: DAY 1
     Dates: start: 20111010

REACTIONS (21)
  - FEELING ABNORMAL [None]
  - INFLUENZA LIKE ILLNESS [None]
  - JOINT SWELLING [None]
  - CONVULSION [None]
  - NAUSEA [None]
  - HAEMATOCHEZIA [None]
  - VOMITING [None]
  - INSOMNIA [None]
  - FATIGUE [None]
  - NASAL CONGESTION [None]
  - DRUG INEFFECTIVE [None]
  - CONDITION AGGRAVATED [None]
  - BODY TEMPERATURE INCREASED [None]
  - ROAD TRAFFIC ACCIDENT [None]
  - INFLUENZA [None]
  - HYPERHIDROSIS [None]
  - LETHARGY [None]
  - RECTAL HAEMORRHAGE [None]
  - ABDOMINAL PAIN UPPER [None]
  - PYREXIA [None]
  - PAIN [None]
